FAERS Safety Report 8923293 (Version 1)
Quarter: 2012Q4

REPORT INFORMATION
  Report Type: Report from Study
  Country: CA (occurrence: CA)
  Receive Date: 20121123
  Receipt Date: 20121123
  Transmission Date: 20130627
  Serious: Yes (Other)
  Sender: FDA-Public Use
  Company Number: CA-JNJFOC-20121107298

PATIENT
  Sex: Male

DRUGS (8)
  1. REMICADE [Suspect]
     Indication: CROHN^S DISEASE
     Route: 042
     Dates: start: 20091214
  2. REMICADE [Suspect]
     Indication: CROHN^S DISEASE
     Route: 042
     Dates: start: 20121003
  3. PREDNISONE [Concomitant]
     Route: 065
  4. IMURAN [Concomitant]
     Route: 065
  5. LOSEC [Concomitant]
     Route: 065
  6. VITAMIN D [Concomitant]
     Route: 065
  7. CALCIUM [Concomitant]
     Route: 065
  8. PROBIOTIC [Concomitant]
     Route: 065

REACTIONS (1)
  - Necrotising fasciitis [Unknown]
